FAERS Safety Report 7424546-7 (Version None)
Quarter: 2011Q2

REPORT INFORMATION
  Report Type: 
  Country: None (occurrence: None)
  Receive Date: 20110419
  Receipt Date: 20110415
  Transmission Date: 20111010
  Serious: Yes (Other)
  Sender: FDA-Public Use
  Company Number: US-PFIZER INC-2009271957

PATIENT
  Sex: Female
  Weight: 103.4 kg

DRUGS (12)
  1. CHANTIX [Suspect]
     Indication: SMOKING CESSATION THERAPY
     Dosage: 0.5 MG, 1X/DAY
     Route: 048
     Dates: start: 20090829, end: 20090101
  2. CHANTIX [Suspect]
     Dosage: UNK
     Dates: start: 20100901, end: 20100901
  3. CHANTIX [Suspect]
     Dosage: 0.5 MG, 2X/DAY
     Dates: start: 20090901, end: 20100101
  4. DILTIAZEM [Concomitant]
     Dosage: 300 MG, UNK
     Route: 048
  5. CHANTIX [Suspect]
     Dosage: 1 MG, 2X/DAY
  6. BISOPROLOL [Concomitant]
     Indication: HYPERTENSION
     Dosage: 5 MG, UNK
     Route: 048
  7. CHANTIX [Suspect]
     Dosage: 0.5 MG, 1X/DAY
     Route: 048
     Dates: start: 20101002
  8. LASIX [Concomitant]
     Indication: DIURETIC THERAPY
     Dosage: 160 MG, 1X/DAY
     Route: 048
  9. CHANTIX [Suspect]
     Dosage: 1 MG, 2X/DAY
     Dates: start: 20100201, end: 20100309
  10. WARFARIN [Concomitant]
     Indication: ANTICOAGULANT THERAPY
     Dosage: 10 MG, UNK
     Route: 048
  11. CHANTIX [Suspect]
     Dosage: 0.5 MG, 1X/DAY
     Route: 048
     Dates: start: 20090908, end: 20090901
  12. BISOPROLOL [Concomitant]
     Indication: CARDIAC DISORDER

REACTIONS (16)
  - FEAR [None]
  - DIABETES MELLITUS [None]
  - FEELING JITTERY [None]
  - WEIGHT DECREASED [None]
  - NERVOUSNESS [None]
  - ABNORMAL DREAMS [None]
  - NAUSEA [None]
  - PYREXIA [None]
  - VOMITING [None]
  - WEIGHT INCREASED [None]
  - ANXIETY [None]
  - BLOOD GLUCOSE INCREASED [None]
  - VERTIGO [None]
  - HYPERTENSION [None]
  - CHRONIC OBSTRUCTIVE PULMONARY DISEASE [None]
  - TREATMENT NONCOMPLIANCE [None]
